FAERS Safety Report 7690343-0 (Version None)
Quarter: 2011Q3

REPORT INFORMATION
  Report Type: 
  Country: None (occurrence: None)
  Receive Date: 20110818
  Receipt Date: 20110809
  Transmission Date: 20111222
  Serious: Yes (Life-Threatening, Hospitalization, Other)
  Sender: FDA-Public Use
  Company Number: US-SHIRE-ALL1-2011-02692

PATIENT
  Sex: Male
  Weight: 61.224 kg

DRUGS (1)
  1. AMPHETAMINES [Suspect]
     Indication: ATTENTION DEFICIT/HYPERACTIVITY DISORDER
     Dosage: 20 MG, 2X/DAY:BID
     Route: 048

REACTIONS (6)
  - OVERDOSE [None]
  - DEHYDRATION [None]
  - HYPERSENSITIVITY [None]
  - ORGAN FAILURE [None]
  - PARANOIA [None]
  - INAPPROPRIATE SCHEDULE OF DRUG ADMINISTRATION [None]
